FAERS Safety Report 5235350-2 (Version None)
Quarter: 2007Q1

REPORT INFORMATION
  Report Type: 
  Country: None (occurrence: None)
  Receive Date: 20070212
  Receipt Date: 20070129
  Transmission Date: 20070707
  Serious: Yes (Hospitalization, Other)
  Sender: FDA-Public Use
  Company Number: PHBS2007TR01817

PATIENT
  Age: 56 Year
  Sex: Female

DRUGS (2)
  1. FLUVASTATIN [Suspect]
     Dosage: 80 MG, UNK
  2. GEMFIBROZIL [Suspect]
     Dosage: 1200 MG, UNK

REACTIONS (20)
  - AGITATION [None]
  - ALANINE AMINOTRANSFERASE INCREASED [None]
  - ASPARTATE AMINOTRANSFERASE INCREASED [None]
  - BLOOD CREATINE PHOSPHOKINASE INCREASED [None]
  - BLOOD CREATININE INCREASED [None]
  - BLOOD LACTATE DEHYDROGENASE INCREASED [None]
  - BLOOD PRESSURE INCREASED [None]
  - BLOOD UREA INCREASED [None]
  - CHROMATURIA [None]
  - DRUG INTERACTION [None]
  - DYSSTASIA [None]
  - FATIGUE [None]
  - HEPATOCELLULAR DAMAGE [None]
  - MALAISE [None]
  - METABOLIC ACIDOSIS [None]
  - MOTOR DYSFUNCTION [None]
  - MUSCULAR WEAKNESS [None]
  - MYOGLOBIN BLOOD INCREASED [None]
  - RENAL FAILURE ACUTE [None]
  - RHABDOMYOLYSIS [None]
